FAERS Safety Report 5128764-2 (Version None)
Quarter: 2006Q4

REPORT INFORMATION
  Report Type: 
  Country: None (occurrence: None)
  Receive Date: 20061017
  Receipt Date: 20061010
  Transmission Date: 20070319
  Serious: Yes (Hospitalization)
  Sender: FDA-Public Use
  Company Number: GB-MERCK-0610GBR00089

PATIENT
  Age: 51 Year
  Sex: Female

DRUGS (4)
  1. DECADRON [Suspect]
     Indication: CHEMOTHERAPY
     Route: 048
     Dates: start: 20050721, end: 20050831
  2. CARBOPLATIN [Concomitant]
     Indication: OVARIAN CANCER
     Route: 048
     Dates: start: 20050721, end: 20050811
  3. CISPLATIN [Concomitant]
     Indication: OVARIAN CANCER
     Route: 065
     Dates: start: 20050731, end: 20050921
  4. PACLITAXEL [Concomitant]
     Indication: OVARIAN CANCER
     Route: 065
     Dates: start: 20050721, end: 20050721

REACTIONS (3)
  - RASH MACULAR [None]
  - SWOLLEN TONGUE [None]
  - TACHYCARDIA [None]
